FAERS Safety Report 6089357-6 (Version None)
Quarter: 2009Q1

REPORT INFORMATION
  Report Type: 
  Country: None (occurrence: None)
  Receive Date: 20090219
  Receipt Date: 20090203
  Transmission Date: 20090719
  Serious: Yes (Hospitalization, Other)
  Sender: FDA-Public Use
  Company Number: 530#6#2008-00002

PATIENT
  Sex: Male
  Weight: 75 kg

DRUGS (5)
  1. NEUPRO [Suspect]
     Indication: PARKINSON'S DISEASE
     Dosage: SEE IMAGE
     Route: 062
     Dates: start: 20070201, end: 20070207
  2. NEUPRO [Suspect]
     Indication: PARKINSON'S DISEASE
     Dosage: SEE IMAGE
     Route: 062
     Dates: start: 20070208
  3. RASAGILINE (RASAGILIN) [Suspect]
     Indication: PARKINSON'S DISEASE
     Dosage: (1 MG QD ORAL)
     Route: 048
     Dates: start: 20060301
  4. LEVOTHYROXINE SODIUM [Concomitant]
  5. DICLOFENAC [Concomitant]

REACTIONS (1)
  - PNEUMONIA [None]
